FAERS Safety Report 8341431-7 (Version None)
Quarter: 2012Q2

REPORT INFORMATION
  Report Type: 
  Country: None (occurrence: None)
  Receive Date: 20120507
  Receipt Date: 20120427
  Transmission Date: 20120825
  Serious: Yes (Hospitalization, Disabling)
  Sender: FDA-Public Use
  Company Number: US-MERCK-1111USA03242

PATIENT
  Age: 78 Year
  Sex: Female

DRUGS (2)
  1. FOSAMAX [Suspect]
     Indication: OSTEOPOROSIS
     Route: 048
     Dates: start: 19970730, end: 20090603
  2. FOSAMAX [Suspect]
     Route: 048
     Dates: end: 20090603

REACTIONS (2)
  - HYPERTENSION [None]
  - FEMUR FRACTURE [None]
